FAERS Safety Report 23917006 (Version 1)
Quarter: 2024Q2

REPORT INFORMATION
  Report Type: Spontaneous
  Country: US (occurrence: US)
  Receive Date: 20240529
  Receipt Date: 20240529
  Transmission Date: 20240716
  Serious: No
  Sender: FDA-Public Use
  Company Number: US-PERRIGO-24US003485

PATIENT
  Age: 29 Year
  Sex: Male
  Weight: 77.098 kg

DRUGS (1)
  1. MINOXIDIL [Suspect]
     Active Substance: MINOXIDIL
     Indication: Product used for unknown indication
     Dosage: 1/2 CAPFUL, BID
     Route: 061
     Dates: start: 20231226, end: 20240315

REACTIONS (5)
  - Cardiac disorder [Not Recovered/Not Resolved]
  - Presyncope [Recovered/Resolved]
  - Palpitations [Not Recovered/Not Resolved]
  - Anxiety [Not Recovered/Not Resolved]
  - Chest pain [Not Recovered/Not Resolved]

NARRATIVE: CASE EVENT DATE: 20240201
